FAERS Safety Report 6251308-9 (Version None)
Quarter: 2009Q2

REPORT INFORMATION
  Report Type: 
  Country: None (occurrence: None)
  Receive Date: 20090630
  Receipt Date: 20090626
  Transmission Date: 20091009
  Serious: Yes (Death)
  Sender: FDA-Public Use
  Company Number: PHEH2009US06791

PATIENT
  Sex: Female

DRUGS (10)
  1. TASIGNA [Suspect]
     Indication: ACUTE LYMPHOCYTIC LEUKAEMIA
     Dosage: 400 MG, BID
     Route: 048
  2. PREDNISONE TAB [Concomitant]
  3. LEVOTHYROXINE SODIUM [Concomitant]
  4. ALLOPURINOL [Concomitant]
  5. ACYCLOVIR [Concomitant]
  6. POTASSIUM CHLORIDE [Concomitant]
  7. CIPRO [Concomitant]
  8. MEPRON [Concomitant]
  9. NEURONTIN [Concomitant]
  10. AMBIEN [Concomitant]

REACTIONS (1)
  - DEATH [None]
